FAERS Safety Report 9538056 (Version 3)
Quarter: 2013Q4

REPORT INFORMATION
  Report Type: Spontaneous
  Country: US (occurrence: US)
  Receive Date: 20130920
  Receipt Date: 20131108
  Transmission Date: 20140711
  Serious: Yes (Disabling, Other)
  Sender: FDA-Public Use
  Company Number: US-009507513-1309USA004918

PATIENT
  Sex: Female

DRUGS (4)
  1. TEMODAR [Suspect]
     Indication: BRAIN NEOPLASM MALIGNANT
     Dosage: 4 DF, QD, CONTINUOUSLY.
     Route: 048
     Dates: start: 20120529, end: 20130827
  2. AGGRENOX [Suspect]
     Dosage: UNK
  3. MORPHINE [Suspect]
     Dosage: UNK
  4. KYTRIL [Concomitant]
     Dosage: UNK, PRN

REACTIONS (7)
  - Brain neoplasm malignant [Unknown]
  - Hemiparesis [Unknown]
  - Gastrointestinal disorder [Unknown]
  - Therapeutic response decreased [Unknown]
  - Headache [Unknown]
  - Nausea [Unknown]
  - Vomiting [Unknown]
